FAERS Safety Report 19180420 (Version 1)
Quarter: 2021Q2

REPORT INFORMATION
  Report Type: Spontaneous
  Country: US (occurrence: US)
  Receive Date: 20210426
  Receipt Date: 20210426
  Transmission Date: 20210717
  Serious: Yes (Other)
  Sender: FDA-Public Use
  Company Number: US-GW PHARMA-202104USGW01963

PATIENT

DRUGS (1)
  1. EPIDIOLEX [Suspect]
     Active Substance: CANNABIDIOL
     Indication: LENNOX-GASTAUT SYNDROME
     Dosage: 1260 MILLIGRAM, QD (360 MILLIGRAM IN AM AND AFTERNOON 540 MILLIGRAM IN EVENING) (FIRST SHIPPED ON 26
     Route: 048
     Dates: start: 2020

REACTIONS (4)
  - Off label use [Unknown]
  - Seizure [Unknown]
  - Restlessness [Unknown]
  - Dyskinesia [Unknown]
